FAERS Safety Report 9288910 (Version 1)
Quarter: 2013Q2

REPORT INFORMATION
  Report Type: Spontaneous
  Country: US (occurrence: US)
  Receive Date: 20130514
  Receipt Date: 20130514
  Transmission Date: 20140414
  Serious: Yes (Other)
  Sender: FDA-Public Use
  Company Number: US-INCYTE CORPORATION-2013IN000643

PATIENT
  Age: 59 Year
  Sex: Male
  Weight: 84.81 kg

DRUGS (15)
  1. JAKAFI [Suspect]
     Indication: MYELOFIBROSIS
     Dosage: 20 MG, BID
     Route: 048
     Dates: start: 20130324, end: 20130403
  2. JAKAFI [Suspect]
     Dosage: 10 MG, BID
     Route: 048
     Dates: start: 20130404
  3. TYLENOL [Concomitant]
  4. COZAAR [Concomitant]
  5. WELLBUTRIN [Concomitant]
  6. ALLOPURINOL [Concomitant]
  7. VITAMIN D [Concomitant]
  8. SODIUM BICARBONATE [Concomitant]
  9. MULTIVITAMINS, PLAIN [Concomitant]
  10. ZYRTEC [Concomitant]
  11. ASPIRIN [Concomitant]
     Dosage: 81 MG
  12. SYNTHROID [Concomitant]
  13. TENORMIN [Concomitant]
  14. ANAGRELIDE [Concomitant]
  15. GLUCOSAMINE [Concomitant]

REACTIONS (10)
  - Epistaxis [Unknown]
  - Fatigue [Not Recovered/Not Resolved]
  - Memory impairment [Unknown]
  - Abdominal pain [Unknown]
  - Weight decreased [Unknown]
  - Malaise [Recovered/Resolved]
  - Night sweats [Unknown]
  - Headache [Unknown]
  - White blood cell count decreased [Unknown]
  - Anaemia [Not Recovered/Not Resolved]
